FAERS Safety Report 18464717 (Version 1)
Quarter: 2020Q4

REPORT INFORMATION
  Report Type: Spontaneous
  Country: US (occurrence: US)
  Receive Date: 20201104
  Receipt Date: 20201104
  Transmission Date: 20210114
  Serious: Yes (Other)
  Sender: FDA-Public Use
  Company Number: US-BAYER-2020-236572

PATIENT
  Sex: Female

DRUGS (1)
  1. NAPROXEN SODIUM ({=220 MG) [Suspect]
     Active Substance: NAPROXEN SODIUM
     Route: 065

REACTIONS (2)
  - Incorrect dose administered [Unknown]
  - Gastric haemorrhage [Unknown]
